FAERS Safety Report 14134668 (Version 2)
Quarter: 2017Q4

REPORT INFORMATION
  Report Type: Report from Study
  Country: CA (occurrence: CA)
  Receive Date: 20171027
  Receipt Date: 20171102
  Transmission Date: 20180321
  Serious: Yes (Other)
  Sender: FDA-Public Use
  Company Number: CA-JNJFOC-20171029367

PATIENT
  Age: 40 Year
  Sex: Female
  Weight: 110 kg

DRUGS (1)
  1. REMICADE [Suspect]
     Active Substance: INFLIXIMAB
     Indication: CROHN^S DISEASE
     Route: 042
     Dates: start: 20041013

REACTIONS (1)
  - Ophthalmic herpes zoster [Unknown]

NARRATIVE: CASE EVENT DATE: 201710
